FAERS Safety Report 17442241 (Version 1)
Quarter: 2020Q1

REPORT INFORMATION
  Report Type: Spontaneous
  Country: DE (occurrence: DE)
  Receive Date: 20200220
  Receipt Date: 20200220
  Transmission Date: 20200409
  Serious: Yes (Other)
  Sender: FDA-Public Use
  Company Number: DE-BAYER-2020-025333

PATIENT
  Age: 55 Year
  Sex: Female
  Weight: 57 kg

DRUGS (1)
  1. CIPROBAY 500 MG [Suspect]
     Active Substance: CIPROFLOXACIN
     Dosage: UNK
     Route: 048
     Dates: start: 20180106, end: 20180106

REACTIONS (11)
  - Myalgia [None]
  - Food intolerance [None]
  - Aortic dilatation [None]
  - Alopecia [None]
  - Muscular weakness [None]
  - Dyspepsia [None]
  - Vitreous opacities [None]
  - Arthralgia [None]
  - Varicose vein [None]
  - Retinal tear [None]
  - Heart rate increased [None]

NARRATIVE: CASE EVENT DATE: 20180109
